FAERS Safety Report 8002088-8 (Version None)
Quarter: 2011Q4

REPORT INFORMATION
  Report Type: 
  Country: None (occurrence: None)
  Receive Date: 20111222
  Receipt Date: 20111222
  Transmission Date: 20120403
  Serious: Yes (Other)
  Sender: FDA-Public Use
  Company Number: US-ABBOTT-11P-163-0885629-00

PATIENT
  Age: 30 Year
  Sex: Female

DRUGS (4)
  1. TRUVADA [Suspect]
     Indication: ANTIRETROVIRAL THERAPY
     Dosage: 1 TAB/CAPS DAILY
     Route: 048
     Dates: start: 20110805
  2. NORVIR [Suspect]
     Indication: ANTIVIRAL TREATMENT
     Route: 048
     Dates: start: 20110805
  3. PREZISTA [Suspect]
     Dosage: NOT TAKEN AT CONCEPTION
     Route: 048
     Dates: start: 20110810
  4. PREZISTA [Suspect]
     Indication: ANTIVIRAL TREATMENT
     Dosage: NOT TAKEN AT CONCEPTION
     Route: 048
     Dates: start: 20110805, end: 20110810

REACTIONS (1)
  - ABORTION SPONTANEOUS [None]
